FAERS Safety Report 22177260 (Version 2)
Quarter: 2023Q2

REPORT INFORMATION
  Report Type: Spontaneous
  Country: None (occurrence: US)
  Receive Date: 20230405
  Receipt Date: 20230515
  Transmission Date: 20230722
  Serious: Yes (Other)
  Sender: FDA-Public Use
  Company Number: US-Imprimis NJOF, LLC-2139926

PATIENT

DRUGS (1)
  1. MOXIFLOXACIN\TRIAMCINOLONE [Suspect]
     Active Substance: MOXIFLOXACIN\TRIAMCINOLONE
     Route: 031

REACTIONS (1)
  - Hypopyon [Unknown]
